FAERS Safety Report 5496208-7 (Version None)
Quarter: 2007Q4

REPORT INFORMATION
  Report Type: 
  Country: None (occurrence: None)
  Receive Date: 20071025
  Receipt Date: 20070312
  Transmission Date: 20080405
  Serious: No
  Sender: FDA-Public Use
  Company Number: A0642840A

PATIENT
  Age: 63 Year
  Sex: Female

DRUGS (9)
  1. ADVAIR DISKUS 100/50 [Suspect]
     Indication: CHRONIC OBSTRUCTIVE PULMONARY DISEASE
     Dosage: 1PUFF TWICE PER DAY
     Route: 055
     Dates: start: 20040101
  2. SPIRIVA [Concomitant]
  3. OXYGEN [Concomitant]
  4. SUCRALFATE [Concomitant]
  5. PREVACID [Concomitant]
  6. CARTIA XT [Concomitant]
  7. ACTONEL [Concomitant]
  8. XANAX [Concomitant]
  9. NASACORT [Concomitant]

REACTIONS (2)
  - SINUSITIS [None]
  - THROAT IRRITATION [None]
